FAERS Safety Report 8834454 (Version 1)
Quarter: 2012Q4

REPORT INFORMATION
  Report Type: 
  Country: US (occurrence: US)
  Receive Date: 20121010
  Receipt Date: 20121010
  Transmission Date: 20130627
  Serious: Yes (Hospitalization, Other)
  Sender: FDA-Public Use
  Company Number: PHEH2012US019844

PATIENT
  Sex: Female

DRUGS (1)
  1. GILENYA [Suspect]
     Indication: MULTIPLE SCLEROSIS
     Dosage: 0.5 mg, QD
     Route: 048
     Dates: start: 20110301

REACTIONS (5)
  - Musculoskeletal disorder [Unknown]
  - Gait disturbance [Unknown]
  - Thrombosis [Unknown]
  - Oedema peripheral [Unknown]
  - Paraesthesia [Unknown]
